FAERS Safety Report 8367747-6 (Version None)
Quarter: 2012Q2

REPORT INFORMATION
  Report Type: 
  Country: None (occurrence: None)
  Receive Date: 20120517
  Receipt Date: 20120514
  Transmission Date: 20120825
  Serious: Yes (Hospitalization)
  Sender: FDA-Public Use
  Company Number: DE-GLAXOSMITHKLINE-B0784520B

PATIENT
  Sex: Female
  Weight: 78 kg

DRUGS (7)
  1. DOXORUBICIN HCL [Suspect]
     Indication: BREAST CANCER
     Dosage: 37MG WEEKLY
     Route: 065
     Dates: start: 20120124
  2. HERCEPTIN [Suspect]
     Indication: BREAST CANCER
     Dosage: 468MG EVERY 3 WEEKS
     Route: 065
     Dates: start: 20120124
  3. FUCICORT [Concomitant]
     Dates: start: 20120509
  4. LAPATINIB [Suspect]
     Indication: BREAST CANCER
     Dosage: 750MG PER DAY
     Route: 065
     Dates: start: 20120124
  5. CEFUROXIME [Concomitant]
     Dosage: 500MG TWICE PER DAY
     Dates: start: 20120502, end: 20120511
  6. NEUPOGEN [Concomitant]
     Dates: start: 20120509
  7. PACLITAXEL [Suspect]
     Indication: BREAST CANCER
     Dosage: 147MG WEEKLY
     Route: 065
     Dates: start: 20120124

REACTIONS (1)
  - PYREXIA [None]
